FAERS Safety Report 20024780 (Version 1)
Quarter: 2021Q4

REPORT INFORMATION
  Report Type: Spontaneous
  Country: US (occurrence: None)
  Receive Date: 20211102
  Receipt Date: 20211102
  Transmission Date: 20220304
  Serious: Yes (Death, Life-Threatening, Hospitalization, Other)
  Sender: FDA-Public Use
  Company Number: US-MLMSERVICE-20211014-3168255-1

PATIENT
  Age: 72 Year
  Sex: Female

DRUGS (1)
  1. ALLOPURINOL [Suspect]
     Active Substance: ALLOPURINOL
     Indication: Gout
     Dosage: UNKNOWN
     Route: 065

REACTIONS (4)
  - Hepatic enzyme increased [Fatal]
  - Cardio-respiratory arrest [Fatal]
  - Drug reaction with eosinophilia and systemic symptoms [Fatal]
  - Diverticulum [Fatal]
